FAERS Safety Report 6333008-X (Version None)
Quarter: 2009Q3

REPORT INFORMATION
  Report Type: 
  Country: None (occurrence: None)
  Receive Date: 20090828
  Receipt Date: 20090824
  Transmission Date: 20100115
  Serious: Yes (Life-Threatening, Hospitalization, Disabling, Other)
  Sender: FDA-Public Use
  Company Number: PHHY2009GB17492

PATIENT
  Sex: Female

DRUGS (9)
  1. CLOZARIL [Suspect]
     Indication: SCHIZOPHRENIA
     Dosage: UNK
     Route: 048
     Dates: start: 20080509
  2. CLOZARIL [Suspect]
     Dosage: 400 MG/DAY
     Route: 048
     Dates: start: 20080618, end: 20090421
  3. OMEPRAZOLE [Concomitant]
     Dosage: 40 MG, UNK
     Route: 048
  4. CANDESARTAN CILEXETIL [Concomitant]
     Dosage: 4 MG, UNK
     Route: 048
  5. SIMVASTATIN [Concomitant]
     Dosage: 20 MG, UNK
     Route: 048
  6. SERTRALINE HCL [Concomitant]
     Dosage: 150 MG, UNK
     Route: 048
  7. LACTULOSE [Concomitant]
     Dosage: 15 MG, UNK
     Route: 048
  8. OXYBUTYNIN [Concomitant]
     Dosage: 10 MG, UNK
     Route: 048
  9. HYOSCINE HBR HYT [Concomitant]
     Dosage: 900 MG, UNK
     Route: 048

REACTIONS (5)
  - ABDOMINAL PAIN [None]
  - COLECTOMY [None]
  - INTESTINAL PERFORATION [None]
  - INTESTINAL STOMA [None]
  - PLATELET COUNT INCREASED [None]
